FAERS Safety Report 13708971 (Version 3)
Quarter: 2017Q4

REPORT INFORMATION
  Report Type: Spontaneous
  Country: JP (occurrence: JP)
  Receive Date: 20170701
  Receipt Date: 20171011
  Transmission Date: 20180320
  Serious: Yes (Hospitalization, Other)
  Sender: FDA-Public Use
  Company Number: JP-AMGEN-JPNSP2017100281

PATIENT
  Age: 7 Decade
  Sex: Female

DRUGS (3)
  1. DOCETAXEL. [Concomitant]
     Active Substance: DOCETAXEL
     Indication: NON-SMALL CELL LUNG CANCER
     Dosage: UNK
     Route: 041
  2. GRAN [Suspect]
     Active Substance: FILGRASTIM
     Indication: PRODUCT USED FOR UNKNOWN INDICATION
     Dosage: UNK
     Route: 065
  3. CYRAMZA [Concomitant]
     Active Substance: RAMUCIRUMAB
     Indication: NON-SMALL CELL LUNG CANCER
     Dosage: UNK
     Route: 041

REACTIONS (1)
  - Drug eruption [Recovering/Resolving]

NARRATIVE: CASE EVENT DATE: 20170620
